FAERS Safety Report 21558056 (Version 1)
Quarter: 2022Q4

REPORT INFORMATION
  Report Type: Spontaneous
  Country: CN (occurrence: CN)
  Receive Date: 20221107
  Receipt Date: 20221107
  Transmission Date: 20230113
  Serious: Yes (Hospitalization, Other)
  Sender: FDA-Public Use
  Company Number: CN-CELGENE-CHN-20200205595

PATIENT
  Age: 43 Year
  Sex: Female
  Weight: 56 kg

DRUGS (21)
  1. ABRAXANE [Suspect]
     Active Substance: PACLITAXEL
     Indication: Non-small cell lung cancer
     Dosage: 153 MILLIGRAM
     Route: 042
     Dates: start: 20200116, end: 20200130
  2. ABRAXANE [Suspect]
     Active Substance: PACLITAXEL
     Dosage: 156 MILLIGRAM
     Route: 042
     Dates: start: 20200213, end: 20200227
  3. CARBOPLATIN [Suspect]
     Active Substance: CARBOPLATIN
     Indication: Non-small cell lung cancer
     Dosage: 641 MILLIGRAM
     Route: 042
     Dates: start: 20200116, end: 20200116
  4. CARBOPLATIN [Suspect]
     Active Substance: CARBOPLATIN
     Dosage: FREQUENCY TEXT: NOT PROVIDED?REDUCED TO 75% OF THE PLANNNED DOSE
     Route: 042
  5. CARBOPLATIN [Suspect]
     Active Substance: CARBOPLATIN
     Dosage: 641 MILLIGRAM
     Route: 042
     Dates: start: 20200213
  6. SERPLULIMAB [Suspect]
     Active Substance: SERPLULIMAB
     Indication: Non-small cell lung cancer
     Dosage: 252 MILLIGRAM
     Route: 042
     Dates: start: 20200116, end: 20200116
  7. SERPLULIMAB [Suspect]
     Active Substance: SERPLULIMAB
     Dosage: 252 MILLIGRAM
     Route: 042
     Dates: start: 20200213
  8. Di Yu Sheng Bai [Concomitant]
     Indication: White blood cell count decreased
     Dosage: .6 GRAM
     Route: 048
     Dates: start: 20200129, end: 20200131
  9. Di Yu Sheng Bai [Concomitant]
     Indication: Neutrophil count decreased
     Dosage: 1.2 GRAM
     Route: 048
     Dates: start: 20200205
  10. ACETYLCYSTEINE [Concomitant]
     Active Substance: ACETYLCYSTEINE
     Indication: Product used for unknown indication
     Dosage: 1.2 GRAM
     Route: 048
     Dates: start: 20200129, end: 20200131
  11. Eucalyptol limonene [Concomitant]
     Indication: Product used for unknown indication
     Dosage: .9 GRAM
     Route: 048
     Dates: start: 20200129, end: 20200131
  12. Pinene enteric [Concomitant]
     Indication: Product used for unknown indication
     Dosage: .9 GRAM
     Route: 048
     Dates: start: 20200129, end: 20200131
  13. GLYCYRRHIZIN [Concomitant]
     Active Substance: GLYCYRRHIZIN
     Indication: Gamma-glutamyltransferase increased
     Dosage: 75 MILLIGRAM
     Route: 048
     Dates: start: 20200129, end: 20200131
  14. GLYCYRRHIZIN [Concomitant]
     Active Substance: GLYCYRRHIZIN
     Indication: Aspartate aminotransferase increased
     Dosage: 60 MILLILITER
     Route: 041
     Dates: start: 20200205
  15. CIMETIDINE [Concomitant]
     Active Substance: CIMETIDINE
     Indication: Product used for unknown indication
     Dosage: FREQUENCY TEXT: ONCE
     Route: 041
     Dates: start: 20200130, end: 20200130
  16. SODIUM CHLORIDE [Concomitant]
     Active Substance: SODIUM CHLORIDE
     Indication: Product used for unknown indication
     Dosage: FREQUENCY TEXT: ONCE
     Route: 041
     Dates: start: 20200130, end: 20200130
  17. GRANISETRON HYDROCHLORIDE [Concomitant]
     Active Substance: GRANISETRON HYDROCHLORIDE
     Indication: Product used for unknown indication
     Dosage: FREQUENCY TEXT: ONCE
     Route: 041
     Dates: start: 20200130, end: 20200130
  18. GLUTATHIONE [Concomitant]
     Active Substance: GLUTATHIONE
     Indication: Product used for unknown indication
     Dosage: FREQUENCY TEXT: ONCE
     Route: 041
     Dates: start: 20200130, end: 20200130
  19. GLUTATHIONE [Concomitant]
     Active Substance: GLUTATHIONE
     Dosage: 1.8 GRAM
     Route: 041
     Dates: start: 20200205
  20. GRANULOCYTE COLONY-STIMULATING FACTOR NOS [Concomitant]
     Active Substance: GRANULOCYTE COLONY-STIMULATING FACTOR NOS
     Indication: White blood cell count decreased
     Dosage: FREQUENCY TEXT: ONCE
     Route: 058
     Dates: start: 20200205, end: 20200205
  21. GRANULOCYTE COLONY-STIMULATING FACTOR NOS [Concomitant]
     Active Substance: GRANULOCYTE COLONY-STIMULATING FACTOR NOS
     Indication: Neutrophil count decreased

REACTIONS (1)
  - Drug-induced liver injury [Recovered/Resolved]

NARRATIVE: CASE EVENT DATE: 20200205
